FAERS Safety Report 9972947 (Version 2)
Quarter: 2014Q2

REPORT INFORMATION
  Report Type: Other
  Country: GB (occurrence: GB)
  Receive Date: 20140306
  Receipt Date: 20140401
  Transmission Date: 20141212
  Serious: Yes (Death)
  Sender: FDA-Public Use
  Company Number: GB-PERRIGO-14GB001893

PATIENT
  Sex: 0

DRUGS (16)
  1. DEXSOL 0.4MG/ML PL00427/0137 [Suspect]
     Indication: CASTLEMAN^S DISEASE
     Dosage: DOSAGE FORM: UNSPECIFIED
     Route: 065
  2. DEXSOL 0.4MG/ML PL00427/0137 [Suspect]
     Route: 065
  3. CISPLATIN [Suspect]
     Indication: CASTLEMAN^S DISEASE
     Dosage: DOSAGE FORM: UNSPECIFIED
     Route: 065
  4. CISPLATIN [Suspect]
     Indication: CASTLEMAN^S DISEASE
     Route: 065
  5. CYCLOPHOSPHAMIDE [Suspect]
     Indication: CASTLEMAN^S DISEASE
     Dosage: DOSAGE FORM: UNSPECIFIED
     Route: 065
  6. CYCLOPHOSPHAMIDE [Suspect]
     Indication: CASTLEMAN^S DISEASE
     Route: 065
  7. CYTARABINE [Suspect]
     Indication: CASTLEMAN^S DISEASE
     Dosage: DOSAGE FORM: UNSPECIFIED
     Route: 065
  8. CYTARABINE [Suspect]
     Indication: CASTLEMAN^S DISEASE
     Route: 065
  9. DOXORUBICIN HYDROCHLORIDE [Suspect]
     Indication: CASTLEMAN^S DISEASE
     Dosage: DOSAGE FORM: LIPOSOME INJECTION
     Route: 042
  10. DOXORUBICIN HYDROCHLORIDE [Suspect]
     Indication: CASTLEMAN^S DISEASE
     Dosage: LIPOSOME INJECTION
     Route: 042
  11. PREDNISONE [Suspect]
     Indication: CASTLEMAN^S DISEASE
     Dosage: DOSAGE FORM: UNSPECIFIED
     Route: 065
  12. PREDNISONE [Suspect]
     Indication: CASTLEMAN^S DISEASE
     Route: 065
  13. RITUXIMAB [Suspect]
     Indication: CASTLEMAN^S DISEASE
     Dosage: DOSAGE FORM: UNSPECIFIED, PART OF R-CHOP AND R-DHAP
     Route: 065
  14. RITUXIMAB [Suspect]
     Indication: CASTLEMAN^S DISEASE
     Dosage: PART OF R-CHOP AND R-DHAP
     Route: 065
  15. VINCRISTINE [Suspect]
     Indication: CASTLEMAN^S DISEASE
     Dosage: DOSAGE FORM: UNSPECIFIED
     Route: 065
  16. VINCRISTINE [Suspect]
     Indication: CASTLEMAN^S DISEASE
     Route: 065

REACTIONS (2)
  - Castleman^s disease [Fatal]
  - Off label use [Unknown]
